FAERS Safety Report 5628141-1 (Version None)
Quarter: 2008Q1

REPORT INFORMATION
  Report Type: 
  Country: None (occurrence: None)
  Receive Date: 20080215
  Receipt Date: 20080206
  Transmission Date: 20080703
  Serious: Yes (Other)
  Sender: FDA-Public Use
  Company Number: FR-ELI_LILLY_AND_COMPANY-FR200710002630

PATIENT
  Age: 80 Year
  Sex: Male
  Weight: 65 kg

DRUGS (3)
  1. GEMZAR [Suspect]
     Indication: PANCREATIC CARCINOMA
     Dosage: 1000 MG/M2, OTHER
     Route: 042
     Dates: start: 20070705, end: 20070829
  2. EPREX [Concomitant]
     Indication: ANAEMIA
     Route: 058
     Dates: start: 20070605, end: 20070704
  3. EPOGEN [Concomitant]
     Indication: ANAEMIA
     Dosage: UNK, UNKNOWN
     Route: 065
     Dates: start: 20070704

REACTIONS (3)
  - ASTHENIA [None]
  - GENERALISED OEDEMA [None]
  - NEUTROPENIA [None]
